FAERS Safety Report 5636080-5 (Version None)
Quarter: 2008Q1

REPORT INFORMATION
  Report Type: 
  Country: None (occurrence: None)
  Receive Date: 20080219
  Receipt Date: 20080208
  Transmission Date: 20080703
  Serious: Yes (Death, Other)
  Sender: FDA-Public Use
  Company Number: 2008US000289

PATIENT
  Age: 56 Year
  Sex: Female

DRUGS (5)
  1. PROGRAF [Suspect]
     Indication: RENAL TRANSPLANT
  2. MYFORTIC [Concomitant]
  3. PREDNISONE TAB [Concomitant]
  4. METOPROLOL TARTRATE [Concomitant]
  5. NISTATIN (NYSTATIN) [Concomitant]

REACTIONS (2)
  - COMPLICATIONS OF TRANSPLANTED KIDNEY [None]
  - NEUTROPENIA [None]
